FAERS Safety Report 4399840-7 (Version None)
Quarter: 2004Q3

REPORT INFORMATION
  Report Type: 
  Country: None (occurrence: None)
  Receive Date: 20040714
  Receipt Date: 20040630
  Transmission Date: 20050211
  Serious: Yes (Hospitalization)
  Sender: FDA-Public Use
  Company Number: JP_040703680

PATIENT
  Age: 42 Year
  Sex: Male

DRUGS (6)
  1. ONCOVIN [Suspect]
     Indication: BURKITT'S LYMPHOMA
     Dates: start: 20031220
  2. CYCLOPHOSPHAMIDE [Concomitant]
  3. DOXORUBICIN HCL [Concomitant]
  4. DEXAMETHASONE [Concomitant]
  5. METHOTREXATE [Concomitant]
  6. CYTARABINE [Concomitant]

REACTIONS (5)
  - ABDOMINAL ADHESIONS [None]
  - CANDIDIASIS [None]
  - INFLAMMATION [None]
  - PYREXIA [None]
  - SPLENIC ABSCESS [None]
